FAERS Safety Report 14569801 (Version 2)
Quarter: 2018Q2

REPORT INFORMATION
  Report Type: Spontaneous
  Country: US (occurrence: US)
  Receive Date: 20180224
  Receipt Date: 20180509
  Transmission Date: 20180711
  Serious: Yes (Death, Hospitalization)
  Sender: FDA-Public Use
  Company Number: US-JNJFOC-20180218247

PATIENT
  Age: 76 Year
  Sex: Female
  Weight: 57.15 kg

DRUGS (2)
  1. XARELTO [Suspect]
     Active Substance: RIVAROXABAN
     Indication: PULMONARY EMBOLISM
     Route: 048
     Dates: start: 20141104, end: 20160406
  2. XARELTO [Suspect]
     Active Substance: RIVAROXABAN
     Indication: PULMONARY EMBOLISM
     Route: 048
     Dates: start: 20140825, end: 20141103

REACTIONS (3)
  - Non-small cell lung cancer [Fatal]
  - Cerebral haemorrhage [Recovering/Resolving]
  - Coagulopathy [Unknown]

NARRATIVE: CASE EVENT DATE: 201604
